FAERS Safety Report 12407743 (Version 1)
Quarter: 2016Q2

REPORT INFORMATION
  Report Type: Spontaneous
  Country: JP (occurrence: JP)
  Receive Date: 20160526
  Receipt Date: 20160526
  Transmission Date: 20160815
  Serious: Yes (Hospitalization, Other)
  Sender: FDA-Public Use
  Company Number: JP-GLAXOSMITHKLINE-A201008567

PATIENT
  Age: 18 Year
  Sex: Female
  Weight: 46 kg

DRUGS (2)
  1. LAMOTRIGINE. [Suspect]
     Active Substance: LAMOTRIGINE
     Indication: EPILEPSY
     Route: 048
     Dates: start: 20100629, end: 20100712
  2. LAMOTRIGINE. [Suspect]
     Active Substance: LAMOTRIGINE
     Indication: EPILEPSY
     Route: 048
     Dates: start: 20100713, end: 20100723

REACTIONS (18)
  - Eye pain [Unknown]
  - Hepatic function abnormal [Unknown]
  - Drug eruption [Unknown]
  - Erythema [Unknown]
  - Rash generalised [Unknown]
  - Erythema [Unknown]
  - Pyrexia [Unknown]
  - Lymphocyte morphology abnormal [Unknown]
  - Blood lactate dehydrogenase increased [Unknown]
  - C-reactive protein increased [Unknown]
  - Papule [Unknown]
  - Lymphocytic infiltration [Unknown]
  - Lymphadenopathy [Unknown]
  - Aspartate aminotransferase increased [Unknown]
  - Drug reaction with eosinophilia and systemic symptoms [Recovering/Resolving]
  - Eosinophil count increased [Unknown]
  - Alanine aminotransferase increased [Unknown]
  - Lymphadenopathy [Unknown]

NARRATIVE: CASE EVENT DATE: 20100711
